FAERS Safety Report 5500111-3 (Version None)
Quarter: 2007Q4

REPORT INFORMATION
  Report Type: 
  Country: None (occurrence: None)
  Receive Date: 20071024
  Receipt Date: 20071016
  Transmission Date: 20080405
  Serious: Yes (Hospitalization)
  Sender: FDA-Public Use
  Company Number: SPV1-2007-04560

PATIENT
  Age: 67 Year
  Sex: Male
  Weight: 90 kg

DRUGS (1)
  1. FOSRENOL [Suspect]
     Indication: HYPERPHOSPHATAEMIA
     Dosage: 2250 MG, ORAL
     Route: 048
     Dates: start: 20070425

REACTIONS (3)
  - CONDITION AGGRAVATED [None]
  - COORDINATION ABNORMAL [None]
  - NO THERAPEUTIC RESPONSE [None]
